FAERS Safety Report 5809643-1 (Version None)
Quarter: 2008Q3

REPORT INFORMATION
  Report Type: 
  Country: None (occurrence: None)
  Receive Date: 20080715
  Receipt Date: 20080704
  Transmission Date: 20090109
  Serious: Yes (Death)
  Sender: FDA-Public Use
  Company Number: CA-JNJFOC-20080701277

PATIENT
  Sex: Male

DRUGS (11)
  1. REMICADE [Suspect]
     Indication: ANKYLOSING SPONDYLITIS
     Route: 042
  2. REMICADE [Suspect]
     Indication: CROHN'S DISEASE
     Route: 042
  3. ALLOPURINOL [Concomitant]
  4. OXYCONTIN [Concomitant]
  5. TOPAMAX [Concomitant]
  6. OXAZEPAM [Concomitant]
  7. EFFEXOR [Concomitant]
  8. DIABETA [Concomitant]
  9. XATRAL [Concomitant]
  10. CLONEZEPAM [Concomitant]
  11. PEMERON [Concomitant]

REACTIONS (1)
  - DEATH [None]
